FAERS Safety Report 8854287 (Version 7)
Quarter: 2014Q1

REPORT INFORMATION
  Report Type: Spontaneous
  Country: US (occurrence: US)
  Receive Date: 20121023
  Receipt Date: 20140326
  Transmission Date: 20141002
  Serious: Yes (Hospitalization, Other)
  Sender: FDA-Public Use
  Company Number: US-009507513-1210USA007181

PATIENT
  Sex: Female
  Weight: 46.26 kg

DRUGS (4)
  1. FOSAMAX [Suspect]
     Indication: OSTEOPENIA
     Dosage: 70 MG, UNK
     Route: 048
     Dates: start: 200601, end: 201110
  2. FOSAMAX [Suspect]
     Indication: OSTEOPOROSIS
  3. FOSAMAX PLUS D [Suspect]
     Indication: OSTEOPOROSIS
     Dosage: 70 MG, UNK
     Route: 048
     Dates: start: 200611, end: 200804
  4. FOSAMAX [Suspect]
     Indication: OSTEOPOROSIS
     Dosage: 70 MG, UNK
     Route: 048
     Dates: start: 200804, end: 20110831

REACTIONS (25)
  - Femur fracture [Recovered/Resolved]
  - Open reduction of fracture [Unknown]
  - Intramedullary rod insertion [Unknown]
  - Intramedullary rod insertion [Recovered/Resolved]
  - Medical device removal [Unknown]
  - Femur fracture [Recovered/Resolved]
  - Gastric operation [Unknown]
  - Femur fracture [Unknown]
  - Low turnover osteopathy [Unknown]
  - Constipation prophylaxis [Unknown]
  - Swelling [Unknown]
  - Pain [Unknown]
  - Osteoarthritis [Not Recovered/Not Resolved]
  - Vascular operation [Unknown]
  - Rheumatoid arthritis [Unknown]
  - Arthropathy [Unknown]
  - Medical device removal [Unknown]
  - Full blood count abnormal [Unknown]
  - Confusional state [Recovered/Resolved]
  - Neoplasm [Unknown]
  - Fall [Unknown]
  - Syncope [Unknown]
  - Thrombocytosis [Unknown]
  - Constipation [Unknown]
  - Abdominal pain upper [Unknown]
